FAERS Safety Report 18326186 (Version 2)
Quarter: 2020Q4

REPORT INFORMATION
  Report Type: Report from Study
  Country: AT (occurrence: AT)
  Receive Date: 20200929
  Receipt Date: 20201015
  Transmission Date: 20210113
  Serious: Yes (Other)
  Sender: FDA-Public Use
  Company Number: AT-MYLANLABS-2020M1082573

PATIENT
  Sex: Female
  Weight: 80.4 kg

DRUGS (42)
  1. CAPECITABINE. [Suspect]
     Active Substance: CAPECITABINE
     Indication: BREAST CANCER
     Dosage: 3500 MILLIGRAM, QD(MOST RECENT DOSE PRIOR TO THE EVENT LYMPH NODE METASTATIS)
     Route: 048
     Dates: start: 20191002, end: 20200107
  2. ZOFRAN [Concomitant]
     Active Substance: ONDANSETRON HYDROCHLORIDE
     Dosage: UNK
     Dates: start: 20200506
  3. OLEOVIT                            /00056001/ [Concomitant]
     Dosage: UNK
     Dates: start: 20170329
  4. PREGABALIN. [Concomitant]
     Active Substance: PREGABALIN
     Dosage: UNK
     Dates: start: 20190821
  5. PANTOPRAZOL                        /01263201/ [Concomitant]
     Active Substance: PANTOPRAZOLE
     Dosage: UNK
     Dates: start: 20200506, end: 20200519
  6. XGEVA [Concomitant]
     Active Substance: DENOSUMAB
     Dosage: UNK
     Dates: start: 20170202
  7. VINORELBINE [Suspect]
     Active Substance: VINORELBINE TARTRATE
     Indication: BREAST CANCER
     Dosage: 45 MILLIGRAM, Q3W
     Route: 042
     Dates: start: 20200422
  8. LAPATINIB [Suspect]
     Active Substance: LAPATINIB
     Indication: BREAST CANCER
     Dosage: 1250 MILLIGRAM, QD(MOST RECENT DOSE PRIOR TO THE EVENT LYMPH NODE METASTATIS)
     Route: 048
     Dates: start: 20191002, end: 20200107
  9. LIXIANA [Concomitant]
     Active Substance: EDOXABAN TOSYLATE
     Dosage: UNK
     Dates: start: 20191120, end: 20200608
  10. PANTOPRAZOL                        /01263201/ [Concomitant]
     Active Substance: PANTOPRAZOLE
     Dosage: UNK
     Dates: start: 20170722, end: 20180327
  11. FORTECORTIN                        /00016001/ [Concomitant]
     Active Substance: DEXAMETHASONE
     Dosage: ONGOING = NOT CHECKED
     Dates: start: 20171007, end: 20171008
  12. FORTECORTIN                        /00016001/ [Concomitant]
     Active Substance: DEXAMETHASONE
     Dosage: UNK
     Dates: start: 20200422, end: 20200505
  13. TRASTUZUMAB. [Suspect]
     Active Substance: TRASTUZUMAB
     Dosage: 624 MILLIGRAM, QD(MOST RECENT DOSE)
     Route: 042
     Dates: end: 20170810
  14. PERTUZUMAB. [Suspect]
     Active Substance: PERTUZUMAB
     Indication: BREAST CANCER METASTATIC
     Dosage: 840 MILLIGRAM, QD(MOST RECENT DOSE PRIOR TO THE EVENT LYMPH NODE METASTATIS AXILLA)
     Route: 042
     Dates: start: 20170224, end: 20170224
  15. DOCETAXEL. [Suspect]
     Active Substance: DOCETAXEL
     Dosage: 190 MILLIGRAM, Q3W(MOST RECENT DOSE PRIOR)
     Route: 042
     Dates: end: 20170609
  16. KCL [Concomitant]
     Active Substance: POTASSIUM CHLORIDE
     Dosage: UNK
     Dates: start: 20170429
  17. FENTANYL. [Concomitant]
     Active Substance: FENTANYL
     Dosage: UNK
     Dates: start: 20200515
  18. NOVALGIN (METAMIZOLE SODIUM) [Concomitant]
     Active Substance: METAMIZOLE SODIUM
     Dosage: UNK
     Dates: start: 20170329, end: 20180807
  19. LEUKICHTAN                         /04749301/ [Concomitant]
     Dosage: UNK
     Dates: start: 20200430, end: 20200515
  20. PARACETAMOL [Concomitant]
     Active Substance: ACETAMINOPHEN
     Dosage: UNK
     Dates: start: 20200506
  21. FORTECORTIN                        /00016001/ [Concomitant]
     Active Substance: DEXAMETHASONE
     Dosage: UNK
     Dates: start: 20171004, end: 20171006
  22. EUTHYROX [Concomitant]
     Active Substance: LEVOTHYROXINE SODIUM
     Dosage: UNK
     Dates: start: 20170303
  23. TRASTUZUMAB. [Suspect]
     Active Substance: TRASTUZUMAB
     Indication: BREAST CANCER METASTATIC
     Dosage: 624 MILLIGRAM, QD
     Route: 042
     Dates: start: 20170224, end: 20170224
  24. FULVESTRANT. [Suspect]
     Active Substance: FULVESTRANT
     Indication: BREAST CANCER
     Dosage: 500 MILLIGRAM, BIWEEKLY(MOST RECENT DOSE PRIOR TO THE EVENT LYMPH NODE METASTATIS)
     Route: 030
     Dates: start: 20171002, end: 20171115
  25. PERTUZUMAB. [Suspect]
     Active Substance: PERTUZUMAB
     Dosage: MOST RECENT DOSE PRIOR TO THE EVENT)
     Route: 042
     Dates: end: 20170317
  26. FORTECORTIN                        /00016001/ [Concomitant]
     Active Substance: DEXAMETHASONE
     Dosage: UNK
     Dates: start: 20171004, end: 20171006
  27. FORTECORTIN                        /00016001/ [Concomitant]
     Active Substance: DEXAMETHASONE
     Dosage: UNK(ONGOING = NOT CHECKED)
     Dates: start: 20171007, end: 20171008
  28. TAZONAM [Concomitant]
     Active Substance: TAZOBACTAM
     Indication: STREPTOCOCCAL SEPSIS
     Dosage: UNK
     Dates: start: 20200423, end: 20200504
  29. TRASTUZUMAB EMTANSINE [Suspect]
     Active Substance: ADO-TRASTUZUMAB EMTANSINE
     Indication: BREAST CANCER
     Dosage: 270 MILLIGRAM, Q3W
     Route: 042
     Dates: start: 20190306, end: 20190909
  30. DOCETAXEL. [Suspect]
     Active Substance: DOCETAXEL
     Indication: BREAST CANCER METASTATIC
     Dosage: 190 MILLIGRAM, Q3W
     Route: 042
     Dates: start: 20170224, end: 20170317
  31. OLIVE OIL [Concomitant]
     Active Substance: OLIVE OIL
     Indication: PARONYCHIA
     Dosage: UNK
     Dates: start: 20191002, end: 20200512
  32. KALIORAL                           /00279301/ [Concomitant]
     Dosage: UNK
     Dates: start: 20200427, end: 20200428
  33. FUROSEMID                          /00032601/ [Concomitant]
     Active Substance: FUROSEMIDE
     Dosage: UNK
     Dates: start: 20170810
  34. EMEND [Concomitant]
     Active Substance: APREPITANT
     Dosage: UNK
     Dates: start: 20200428, end: 20200430
  35. TAVANIC [Concomitant]
     Active Substance: LEVOFLOXACIN
     Dosage: UNK
     Dates: start: 20200506, end: 20200512
  36. FORTECORTIN                        /00016001/ [Concomitant]
     Active Substance: DEXAMETHASONE
     Indication: BRAIN OEDEMA
     Dosage: UNK
     Dates: start: 20200422, end: 20200505
  37. FUROSEMID                          /00032601/ [Concomitant]
     Active Substance: FUROSEMIDE
     Dosage: UNK(ONGOING = NOT CHECKED)
     Dates: start: 20170810, end: 20171213
  38. BETAISODONA [Concomitant]
     Active Substance: POVIDONE-IODINE
     Indication: SKIN FISSURES
     Dosage: UNK(ONGOING = NOT CHECKED)
     Dates: start: 20200430, end: 20200515
  39. LOVENOX [Concomitant]
     Active Substance: ENOXAPARIN SODIUM
     Dosage: UNK
     Dates: start: 20170224, end: 20171130
  40. NERIFORTE [Concomitant]
     Indication: SKIN FISSURES
     Dosage: UNK
     Dates: start: 20200430, end: 20200515
  41. PASPERTIN                          /00041902/ [Concomitant]
     Active Substance: METOCLOPRAMIDE HYDROCHLORIDE
     Dosage: UNK
     Dates: start: 20200506
  42. VITAMINS WITH MINERALS [Concomitant]
     Active Substance: MINERALS\VITAMINS
     Dosage: UNK(ONGOING = CHECKED)
     Dates: start: 20170203

REACTIONS (3)
  - Metastases to central nervous system [Not Recovered/Not Resolved]
  - Metastases to lymph nodes [Not Recovered/Not Resolved]
  - Vascular device infection [Recovered/Resolved]

NARRATIVE: CASE EVENT DATE: 20170921
